FAERS Safety Report 4957570-4 (Version None)
Quarter: 2006Q1

REPORT INFORMATION
  Report Type: 
  Country: None (occurrence: None)
  Receive Date: 20060330
  Receipt Date: 20060112
  Transmission Date: 20060701
  Serious: No
  Sender: FDA-Public Use
  Company Number: US-BRISTOL-MYERS SQUIBB COMPANY-13244959

PATIENT
  Age: 56 Year
  Sex: Female
  Weight: 58 kg

DRUGS (7)
  1. BARACLUDE [Suspect]
     Indication: HEPATITIS B
     Route: 048
     Dates: start: 20051007, end: 20051009
  2. ADEFOVIR DIPIVOXIL KIT [Concomitant]
  3. CALCIUM + VITAMIN D [Concomitant]
  4. MILK THISTLE [Concomitant]
  5. MULTI-VITAMIN [Concomitant]
  6. ACTONEL [Concomitant]
  7. VITAMIN E [Concomitant]

REACTIONS (2)
  - ERYTHEMA [None]
  - FEELING HOT [None]
